FAERS Safety Report 13587084 (Version 1)
Quarter: 2017Q2

REPORT INFORMATION
  Report Type: Spontaneous
  Country: US (occurrence: US)
  Receive Date: 20170526
  Receipt Date: 20170526
  Transmission Date: 20170830
  Serious: No
  Sender: FDA-Public Use
  Company Number: US-009507513-1705USA002829

PATIENT
  Sex: Female
  Weight: 63.49 kg

DRUGS (3)
  1. NEXPLANON [Suspect]
     Active Substance: ETONOGESTREL
     Indication: VAGINAL HAEMORRHAGE
     Dosage: EVERY 3 YEARS
     Route: 059
     Dates: start: 201701, end: 201703
  2. INSULIN [Concomitant]
     Active Substance: INSULIN NOS
     Route: 065
  3. ENALAPRIL [Concomitant]
     Active Substance: ENALAPRIL

REACTIONS (4)
  - Menstruation irregular [Unknown]
  - Nausea [Not Recovered/Not Resolved]
  - Off label use [Unknown]
  - Ovarian cyst [Unknown]

NARRATIVE: CASE EVENT DATE: 2017
